FAERS Safety Report 11518860 (Version 6)
Quarter: 2015Q4

REPORT INFORMATION
  Report Type: Spontaneous
  Country: US (occurrence: US)
  Receive Date: 20150917
  Receipt Date: 20151127
  Transmission Date: 20160304
  Serious: No
  Sender: FDA-Public Use
  Company Number: US-PFIZER INC-2015309600

PATIENT
  Age: 68 Year
  Sex: Female
  Weight: 86 kg

DRUGS (12)
  1. POTASSIUM [Concomitant]
     Active Substance: POTASSIUM
     Dosage: UNK
  2. CYMBALTA [Concomitant]
     Active Substance: DULOXETINE HYDROCHLORIDE
     Dosage: UNK
  3. OCUVITE [Concomitant]
     Active Substance: VITAMINS
     Indication: EYE DISORDER
     Dosage: UNK
  4. PREMARIN [Suspect]
     Active Substance: ESTROGENS, CONJUGATED
     Dosage: 0.5 CREAM EVERY NIGHT FOR 2 WEEKS, THEN 3 TIMES A WEEK
     Dates: start: 20150823, end: 201509
  5. CLOBETASOL [Concomitant]
     Active Substance: CLOBETASOL
     Dosage: UNK
  6. TRIMO SAN [Concomitant]
     Active Substance: OXYQUINOLINE SULFATE\SODIUM LAURYL SULFATE
     Dosage: UNK
  7. ASPIRIN. [Concomitant]
     Active Substance: ASPIRIN
     Dosage: LOW DOSE
  8. PREMARIN [Suspect]
     Active Substance: ESTROGENS, CONJUGATED
     Indication: ATROPHIC VULVOVAGINITIS
     Dosage: 0.625 MG, UNK
     Dates: start: 201507
  9. PREMARIN [Suspect]
     Active Substance: ESTROGENS, CONJUGATED
     Indication: VAGINAL DISORDER
     Dosage: 0.5 G, CYCLIC (AT HS X 2 WKS, THEN 2 NIGHTS/ WEEK THEREAFTER)
     Route: 067
     Dates: start: 20150709
  10. MOBIC [Concomitant]
     Active Substance: MELOXICAM
     Indication: ARTHRITIS
     Dosage: 15 MG
  11. LOSARTAN. [Concomitant]
     Active Substance: LOSARTAN
     Dosage: 125 MG
  12. OXYBUTYNIN [Concomitant]
     Active Substance: OXYBUTYNIN
     Indication: BLADDER DISORDER
     Dosage: 5 MG

REACTIONS (8)
  - Vulvovaginal erythema [Recovering/Resolving]
  - Vulvovaginal pain [Not Recovered/Not Resolved]
  - Vulvovaginal burning sensation [Recovering/Resolving]
  - Drug ineffective [Unknown]
  - Vulvovaginal pruritus [Recovering/Resolving]
  - Hypersensitivity [Not Recovered/Not Resolved]
  - Vulvovaginal swelling [Recovering/Resolving]
  - Vulvovaginal discomfort [Unknown]

NARRATIVE: CASE EVENT DATE: 201507
